FAERS Safety Report 14426988 (Version 1)
Quarter: 2018Q1

REPORT INFORMATION
  Report Type: Spontaneous
  Country: US (occurrence: US)
  Receive Date: 20180123
  Receipt Date: 20180123
  Transmission Date: 20180509
  Serious: No
  Sender: FDA-Public Use
  Company Number: US-ST. RENATUS-2017STR00053

PATIENT
  Sex: Male

DRUGS (1)
  1. KOVANAZE [Suspect]
     Active Substance: OXYMETAZOLINE HYDROCHLORIDE\TETRACAINE HYDROCHLORIDE

REACTIONS (5)
  - Sinus disorder [Recovered/Resolved]
  - Rhinalgia [Recovered/Resolved]
  - Epistaxis [Recovered/Resolved]
  - Intentional product misuse [Recovered/Resolved]
  - Hypoaesthesia [Recovered/Resolved]
